FAERS Safety Report 18709383 (Version 1)
Quarter: 2021Q1

REPORT INFORMATION
  Report Type: Spontaneous
  Country: FR (occurrence: FR)
  Receive Date: 20210106
  Receipt Date: 20210106
  Transmission Date: 20210419
  Serious: Yes (Hospitalization)
  Sender: FDA-Public Use
  Company Number: FR-TEVA-2020-FR-1864878

PATIENT
  Age: 85 Year
  Sex: Female

DRUGS (12)
  1. PARACETAMOL [Suspect]
     Active Substance: ACETAMINOPHEN
     Indication: ANALGESIC INTERVENTION SUPPORTIVE THERAPY
     Dosage: 3GRAM
     Route: 048
     Dates: start: 20201123, end: 20201203
  2. FUROSEMIDE. [Concomitant]
     Active Substance: FUROSEMIDE
     Dosage: 500MILLIGRAM
     Route: 048
  3. EMLA [Concomitant]
     Active Substance: LIDOCAINE\PRILOCAINE
  4. WARFARINE SODIQUE [Suspect]
     Active Substance: WARFARIN SODIUM
     Indication: ARRHYTHMIA
     Dosage: 27MILLIGRAM
     Route: 048
     Dates: start: 202008, end: 20201203
  5. DEXERYL, CREME EN TUBE [Concomitant]
     Dosage: CREAM IN TUBE
     Route: 003
  6. KAYEXALATE [Concomitant]
     Active Substance: SODIUM POLYSTYRENE SULFONATE
     Route: 048
  7. ESOMEPRAZOLE. [Concomitant]
     Active Substance: ESOMEPRAZOLE MAGNESIUM
     Dosage: 20MILLIGRAM
     Route: 048
  8. AERIUS [Concomitant]
     Dosage: 5MILLIGRAM
     Route: 048
  9. BISOPROLOL (HEMIFUMARATE DE) [Suspect]
     Active Substance: BISOPROLOL FUMARATE
     Dosage: 5MILLIGRAM
     Route: 048
     Dates: start: 20201129, end: 20201203
  10. LEVOTHYROX [Concomitant]
     Active Substance: LEVOTHYROXINE
     Dosage: 100MICROGRAM
     Route: 048
  11. BISOPROLOL (HEMIFUMARATE DE) [Suspect]
     Active Substance: BISOPROLOL FUMARATE
     Indication: ATRIAL FIBRILLATION
     Dosage: 1.25MILLIGRAM
     Route: 048
     Dates: start: 202009
  12. FORLAX 10 G, POUDRE POUR SOLUTION BUVABLE EN SACHET?DOSE [Concomitant]
     Active Substance: POLYETHYLENE GLYCOL 4000
     Dosage: 1DOSAGEFORM
     Route: 048

REACTIONS (3)
  - Hepatitis cholestatic [Recovering/Resolving]
  - Hepatitis [Recovering/Resolving]
  - Hepatic failure [Recovering/Resolving]

NARRATIVE: CASE EVENT DATE: 20201203
